FAERS Safety Report 17661060 (Version 1)
Quarter: 2020Q2

REPORT INFORMATION
  Report Type: Spontaneous
  Country: FI (occurrence: US)
  Receive Date: 20200412
  Receipt Date: 20200412
  Transmission Date: 20200713
  Serious: Yes (Hospitalization, Disabling, Other)
  Sender: FDA-Public Use
  Company Number: None

PATIENT
  Age: 26 Year
  Sex: Female
  Weight: 58.5 kg

DRUGS (2)
  1. RISPERIDON [Suspect]
     Active Substance: RISPERIDONE
     Indication: PSYCHOTIC DISORDER
     Route: 048
     Dates: start: 20190101, end: 20190501
  2. XEPLION [Concomitant]
     Active Substance: PALIPERIDONE PALMITATE

REACTIONS (5)
  - Rebound psychosis [None]
  - Amnesia [None]
  - Withdrawal syndrome [None]
  - Feeling abnormal [None]
  - Thinking abnormal [None]

NARRATIVE: CASE EVENT DATE: 20190522
